FAERS Safety Report 8387152-6 (Version None)
Quarter: 2012Q2

REPORT INFORMATION
  Report Type: 
  Country: None (occurrence: None)
  Receive Date: 20120525
  Receipt Date: 20120517
  Transmission Date: 20120825
  Serious: Yes (Hospitalization)
  Sender: FDA-Public Use
  Company Number: JP-VERTEX PHARMACEUTICALS INC.-AE-2012-006746

PATIENT
  Age: 61 Year
  Sex: Female

DRUGS (7)
  1. PEG-INTRON [Concomitant]
     Route: 051
     Dates: start: 20120509
  2. TELAVIC (TELAPREVIR) [Suspect]
     Indication: HEPATITIS C
     Route: 048
     Dates: start: 20120405, end: 20120426
  3. REBETOL [Concomitant]
     Route: 048
     Dates: start: 20120405, end: 20120426
  4. GLYCYRON [Concomitant]
     Route: 048
  5. TELAVIC (TELAPREVIR) [Suspect]
     Route: 048
     Dates: start: 20120427, end: 20120502
  6. REBETOL [Concomitant]
     Route: 048
     Dates: start: 20120427
  7. PEG-INTRON [Concomitant]
     Route: 051
     Dates: start: 20120405, end: 20120502

REACTIONS (1)
  - RASH GENERALISED [None]
